FAERS Safety Report 10085700 (Version 3)
Quarter: 2014Q2

REPORT INFORMATION
  Report Type: Spontaneous
  Country: BR (occurrence: BR)
  Receive Date: 20140418
  Receipt Date: 20140618
  Transmission Date: 20141212
  Serious: Yes (Other)
  Sender: FDA-Public Use
  Company Number: BR-ASTRAZENECA-2014SE25592

PATIENT
  Age: 74 Year
  Sex: Female
  Weight: 53 kg

DRUGS (3)
  1. TENORETIC [Suspect]
     Indication: HYPERTENSION
     Dosage: 50+12.5 MG DAILY
     Route: 048
     Dates: start: 2002
  2. VIMOVO [Suspect]
     Indication: ARTHRALGIA
     Dosage: 500 MG + 20 MG, TWO TIMES A DAY
     Route: 048
     Dates: start: 201404, end: 201405
  3. ENALAPRIL MALEATE [Concomitant]
     Indication: HYPERTENSION
     Route: 048
     Dates: start: 2006

REACTIONS (8)
  - Osteoarthritis [Recovered/Resolved]
  - Joint effusion [Recovered/Resolved]
  - Cyst [Not Recovered/Not Resolved]
  - Dysgeusia [Recovering/Resolving]
  - Blood pressure increased [Recovered/Resolved]
  - Abdominal pain [Recovered/Resolved]
  - Back pain [Recovered/Resolved]
  - Drug ineffective [Recovered/Resolved]
